FAERS Safety Report 20015812 (Version 1)
Quarter: 2021Q4

REPORT INFORMATION
  Report Type: Spontaneous
  Country: US (occurrence: None)
  Receive Date: 20211101
  Receipt Date: 20211101
  Transmission Date: 20220303
  Serious: Yes (Hospitalization)
  Sender: FDA-Public Use
  Company Number: None

PATIENT
  Age: 52 Year
  Sex: Male
  Weight: 76 kg

DRUGS (1)
  1. EMPAGLIFLOZIN [Suspect]
     Active Substance: EMPAGLIFLOZIN
     Indication: Diabetes mellitus
     Dosage: FREQUENCY : DAILY;?
     Route: 048
     Dates: start: 20210327, end: 20211003

REACTIONS (9)
  - Euglycaemic diabetic ketoacidosis [None]
  - Tachycardia [None]
  - Clostridium difficile colitis [None]
  - Metabolic alkalosis [None]
  - Dehydration [None]
  - Myalgia [None]
  - Oropharyngeal pain [None]
  - Acid base balance abnormal [None]
  - Hypovolaemia [None]

NARRATIVE: CASE EVENT DATE: 20211003
